FAERS Safety Report 5495345-0 (Version None)
Quarter: 2007Q4

REPORT INFORMATION
  Report Type: 
  Country: None (occurrence: None)
  Receive Date: 20071024
  Receipt Date: 20071017
  Transmission Date: 20080405
  Serious: Yes (Death, Other)
  Sender: FDA-Public Use
  Company Number: US-MERCK-0704USA05978

PATIENT
  Age: 86 Year
  Sex: Female

DRUGS (1)
  1. FOSAMAX [Suspect]
     Indication: OSTEOPOROSIS
     Route: 048
     Dates: start: 20040320, end: 20060101

REACTIONS (11)
  - ANAEMIA [None]
  - ANXIETY [None]
  - DEPRESSION [None]
  - EAR PAIN [None]
  - HEPATIC ENZYME ABNORMAL [None]
  - OEDEMA [None]
  - OSTEOMYELITIS [None]
  - OSTEONECROSIS [None]
  - SINUSITIS [None]
  - TOOTH ABSCESS [None]
  - VAGINAL CANDIDIASIS [None]
